FAERS Safety Report 23258597 (Version 2)
Quarter: 2023Q4

REPORT INFORMATION
  Report Type: Spontaneous
  Country: US (occurrence: US)
  Receive Date: 20231204
  Receipt Date: 20231206
  Transmission Date: 20240110
  Serious: No
  Sender: FDA-Public Use
  Company Number: US-PFIZER INC-202300415121

PATIENT
  Sex: Male

DRUGS (1)
  1. SULFASALAZINE [Suspect]
     Active Substance: SULFASALAZINE
     Dosage: 500 MG, 3X/DAY

REACTIONS (4)
  - Skin discolouration [Unknown]
  - Tongue discolouration [Unknown]
  - Chromaturia [Unknown]
  - Product colour issue [Unknown]
